FAERS Safety Report 6975422-5 (Version None)
Quarter: 2010Q3

REPORT INFORMATION
  Report Type: 
  Country: None (occurrence: None)
  Receive Date: 20100910
  Receipt Date: 20100820
  Transmission Date: 20110219
  Serious: Yes (Hospitalization, Other)
  Sender: FDA-Public Use
  Company Number: US-BAYER-200942557NA

PATIENT
  Age: 28 Year
  Sex: Female
  Weight: 73 kg

DRUGS (7)
  1. YAZ [Suspect]
     Indication: MENSTRUAL CYCLE MANAGEMENT
     Dates: start: 20071001, end: 20080103
  2. RELPAX [Concomitant]
     Dates: start: 20050801
  3. ASCORBIC ACID [Concomitant]
     Dosage: DAILY
  4. NSAIDS [Concomitant]
  5. PROVIGIL [Concomitant]
     Dosage: UNIT DOSE: 50 MG
     Dates: start: 19990101
  6. TOPAMAX [Concomitant]
     Dosage: UNIT DOSE: 75 MG
     Dates: start: 20050801
  7. RITALIN [Concomitant]
     Dosage: UNIT DOSE: 5 MG
     Dates: start: 20050801, end: 20090801

REACTIONS (7)
  - CHEST PAIN [None]
  - COUGH [None]
  - DEEP VEIN THROMBOSIS [None]
  - DYSPNOEA [None]
  - DYSPNOEA EXERTIONAL [None]
  - PAIN IN EXTREMITY [None]
  - PULMONARY EMBOLISM [None]
